FAERS Safety Report 19942960 (Version 1)
Quarter: 2021Q4

REPORT INFORMATION
  Report Type: Spontaneous
  Country: US (occurrence: US)
  Receive Date: 20211008
  Receipt Date: 20211008
  Transmission Date: 20220303
  Serious: Yes (Other)
  Sender: FDA-Public Use
  Company Number: None

PATIENT
  Age: 68 Year
  Sex: Female
  Weight: 83.25 kg

DRUGS (4)
  1. IRBESARTAN [Suspect]
     Active Substance: IRBESARTAN
     Indication: Blood pressure measurement
     Dosage: ?          QUANTITY:1 TABLET(S);
     Route: 048
     Dates: start: 20210826, end: 20210922
  2. JARDIANCE [Concomitant]
     Active Substance: EMPAGLIFLOZIN
  3. ELIQUIS [Concomitant]
     Active Substance: APIXABAN
  4. B2 [Concomitant]

REACTIONS (1)
  - Diarrhoea [None]

NARRATIVE: CASE EVENT DATE: 20210826
